FAERS Safety Report 4871650-3 (Version None)
Quarter: 2005Q4

REPORT INFORMATION
  Report Type: 
  Country: None (occurrence: None)
  Receive Date: 20051230
  Receipt Date: 20051216
  Transmission Date: 20060501
  Serious: Yes (Life-Threatening, Hospitalization)
  Sender: FDA-Public Use
  Company Number: CIP05002748

PATIENT
  Age: 1 Year
  Sex: Female

DRUGS (10)
  1. DANTRIUM [Suspect]
     Indication: SPASTIC PARAPLEGIA
     Dosage: SEE IMAGE, ORAL
     Route: 048
     Dates: start: 20050322, end: 20050712
  2. DANTRIUM [Suspect]
     Indication: SPASTIC PARAPLEGIA
     Dosage: SEE IMAGE, ORAL
     Route: 048
     Dates: start: 20050912, end: 20050924
  3. CLONAZEPAM [Concomitant]
  4. PHENOBARB (PHENOBARBITAL SODIUM) [Concomitant]
  5. TRIHEXYPHENIDYL HCL [Concomitant]
  6. GASMOTIN (MOSAPRIDE CITRATE) [Concomitant]
  7. MAGNESIUM OXIDE (MAGNESIUM OXIDE) [Concomitant]
  8. LIORESAL [Concomitant]
  9. MYONAL (EPERISOINE HYDROCHLORIDE) [Concomitant]
  10. DIAZEPAM [Concomitant]

REACTIONS (7)
  - C-REACTIVE PROTEIN INCREASED [None]
  - CENTRAL NERVOUS SYSTEM INFLAMMATION [None]
  - PYREXIA [None]
  - RASH [None]
  - SUBDURAL HAEMATOMA [None]
  - THROAT IRRITATION [None]
  - WHITE BLOOD CELL COUNT INCREASED [None]
